FAERS Safety Report 16482145 (Version 3)
Quarter: 2019Q3

REPORT INFORMATION
  Report Type: Report from Study
  Country: US (occurrence: US)
  Receive Date: 20190627
  Receipt Date: 20190822
  Transmission Date: 20191004
  Serious: No
  Sender: FDA-Public Use
  Company Number: US-SA-2019SA172675

PATIENT
  Age: 75 Year
  Sex: Female

DRUGS (3)
  1. BASAGLAR [Concomitant]
     Active Substance: INSULIN GLARGINE
     Dosage: 30 U, HS
  2. ALIROCUMAB [Suspect]
     Active Substance: ALIROCUMAB
     Indication: BLOOD CHOLESTEROL INCREASED
     Dosage: 75 MG, QOW
     Dates: start: 20190621
  3. CRESTOR [Concomitant]
     Active Substance: ROSUVASTATIN CALCIUM

REACTIONS (6)
  - Feeling hot [Unknown]
  - Hypoaesthesia [Unknown]
  - Pruritus [Unknown]
  - Arthralgia [Unknown]
  - Incorrect dose administered [Not Recovered/Not Resolved]
  - Device issue [Not Recovered/Not Resolved]

NARRATIVE: CASE EVENT DATE: 2019
